FAERS Safety Report 10045377 (Version 1)
Quarter: 2014Q1

REPORT INFORMATION
  Report Type: Spontaneous
  Country: US (occurrence: US)
  Receive Date: 20140328
  Receipt Date: 20140328
  Transmission Date: 20141002
  Serious: No
  Sender: FDA-Public Use
  Company Number: US-PFIZER INC-2014085968

PATIENT
  Age: 72 Year
  Sex: Female

DRUGS (4)
  1. DETROL LA [Suspect]
     Indication: MICTURITION URGENCY
     Dosage: UNK
     Dates: start: 201211, end: 201308
  2. DETROL LA [Suspect]
     Indication: URINARY INCONTINENCE
  3. VESICARE [Suspect]
     Indication: MICTURITION URGENCY
     Dosage: UNK
     Dates: start: 201211, end: 201308
  4. VESICARE [Suspect]
     Indication: URINARY INCONTINENCE

REACTIONS (1)
  - Drug ineffective [Unknown]
